APPROVED DRUG PRODUCT: DICYCLOMINE HYDROCHLORIDE
Active Ingredient: DICYCLOMINE HYDROCHLORIDE
Strength: 10MG
Dosage Form/Route: CAPSULE;ORAL
Application: A216639 | Product #001 | TE Code: AB
Applicant: COREPHARMA LLC
Approved: Mar 24, 2023 | RLD: No | RS: No | Type: RX